FAERS Safety Report 9366967 (Version 1)
Quarter: 2013Q2

REPORT INFORMATION
  Report Type: Spontaneous
  Country: GB (occurrence: GB)
  Receive Date: 20130625
  Receipt Date: 20130625
  Transmission Date: 20140414
  Serious: Yes (Life-Threatening, Hospitalization)
  Sender: FDA-Public Use
  Company Number: GB-GLAXOSMITHKLINE-B0900486A

PATIENT
  Age: 80 Year
  Sex: Female
  Weight: 122 kg

DRUGS (12)
  1. ASPIRIN [Suspect]
     Indication: ACUTE CORONARY SYNDROME
     Route: 048
     Dates: start: 20130529, end: 20130602
  2. FONDAPARINUX [Suspect]
     Indication: ACUTE CORONARY SYNDROME
     Route: 058
     Dates: start: 20130530, end: 20130601
  3. TICAGRELOR [Suspect]
     Indication: ACUTE CORONARY SYNDROME
     Route: 048
     Dates: start: 20130529, end: 20130602
  4. OMEPRAZOLE [Concomitant]
  5. QUETIAPINE [Concomitant]
  6. BUMETANIDE [Concomitant]
  7. LEVOTHYROXINE [Concomitant]
  8. CITALOPRAM [Concomitant]
  9. SIMVASTATIN [Concomitant]
  10. RIVASTIGMINE [Concomitant]
  11. SENNA [Concomitant]
  12. LACTULOSE [Concomitant]

REACTIONS (3)
  - Gastrointestinal haemorrhage [Recovering/Resolving]
  - Haematemesis [Recovering/Resolving]
  - Epistaxis [Recovering/Resolving]
